FAERS Safety Report 8803598 (Version 2)
Quarter: 2012Q4

REPORT INFORMATION
  Report Type: 
  Country: US (occurrence: US)
  Receive Date: 20120924
  Receipt Date: 20121019
  Transmission Date: 20130627
  Serious: No
  Sender: FDA-Public Use
  Company Number: US-ASTRAZENECA-2012SE64945

PATIENT
  Age: 58 Year
  Sex: Female

DRUGS (21)
  1. ATENOLOL [Suspect]
     Indication: MITRAL VALVE PROLAPSE
     Route: 048
  2. SYMBICORT [Suspect]
     Indication: ASTHMA
     Dosage: 160 + 4.5 MCG 1 PUFF DAILY
     Route: 055
  3. OMEPRAZOLE [Suspect]
     Indication: GASTROOESOPHAGEAL REFLUX DISEASE
     Route: 048
  4. OMEPRAZOLE [Suspect]
     Indication: DYSPEPSIA
     Route: 048
  5. OMEPRAZOLE [Suspect]
     Indication: GASTROOESOPHAGEAL REFLUX DISEASE
     Route: 048
     Dates: start: 20120208
  6. OMEPRAZOLE [Suspect]
     Indication: DYSPEPSIA
     Route: 048
     Dates: start: 20120208
  7. PROAIR HFA [Concomitant]
     Indication: EMERGENCY CARE
     Dosage: AS NEEDED
  8. SINGULAIR [Concomitant]
     Indication: ASTHMA
     Dosage: 30
  9. TIZANDINE HCL [Concomitant]
     Indication: MUSCLE RELAXANT THERAPY
  10. MULTAQ [Concomitant]
     Indication: ARRHYTHMIA
  11. PRADAXA [Concomitant]
     Indication: THROMBOLYSIS
  12. CLOBETASOL [Concomitant]
     Indication: RASH
     Dosage: 0.05% CREAM, 60 MG, TWO TIMES A DAY
  13. CALCIUM/ VIT D [Concomitant]
     Indication: MUSCLE SPASMS
     Dosage: 1 DAY
  14. CALCIUM MAGNESIUM ZINC [Concomitant]
     Indication: MUSCLE SPASMS
     Dosage: 1 DAY
  15. GAVISCON [Concomitant]
     Dosage: AS NEEDED
  16. MILK THISTLE EXTRACT [Concomitant]
  17. MILK OF MAGNESIA [Concomitant]
  18. VIT B6 [Concomitant]
  19. VIT A + D [Concomitant]
  20. ISOMETH [Concomitant]
     Indication: HEADACHE
     Dosage: AS NEEDED
  21. ESCITALOPHRAM [Concomitant]
     Indication: HEADACHE
     Dosage: 0.5 TAB 14 DAYS

REACTIONS (6)
  - Migraine [Unknown]
  - Malaise [Unknown]
  - Heart rate irregular [Unknown]
  - Off label use [Unknown]
  - Off label use [Unknown]
  - Drug effect incomplete [Unknown]
